FAERS Safety Report 8456238-X (Version None)
Quarter: 2012Q2

REPORT INFORMATION
  Report Type: 
  Country: None (occurrence: None)
  Receive Date: 20120621
  Receipt Date: 20120606
  Transmission Date: 20120825
  Serious: Yes (Hospitalization)
  Sender: FDA-Public Use
  Company Number: AU-WATSON-2012-09947

PATIENT
  Age: 51 Year
  Sex: Female

DRUGS (2)
  1. BACLOFEN [Suspect]
     Indication: OVERDOSE
     Dosage: 1000 MG, SINGLE
     Route: 065
  2. ALCOHOL [Suspect]
     Indication: PRODUCT USED FOR UNKNOWN INDICATION
     Dosage: UNK
     Route: 066

REACTIONS (2)
  - OVERDOSE [None]
  - DELIRIUM [None]
